FAERS Safety Report 5457962-3 (Version None)
Quarter: 2007Q3

REPORT INFORMATION
  Report Type: 
  Country: None (occurrence: None)
  Receive Date: 20070917
  Receipt Date: 20070905
  Transmission Date: 20080115
  Serious: Yes (Other)
  Sender: FDA-Public Use
  Company Number: CERZ-11879

PATIENT
  Age: 73 Year
  Sex: Male

DRUGS (1)
  1. CEREZYME [Suspect]
     Indication: GAUCHER'S DISEASE
     Dosage: 60 U/KG Q2WKS IV
     Route: 042

REACTIONS (4)
  - CONDITION AGGRAVATED [None]
  - LYMPHOMA [None]
  - RECURRENT CANCER [None]
  - SPLENOMEGALY [None]
